FAERS Safety Report 14044348 (Version 2)
Quarter: 2017Q4

REPORT INFORMATION
  Report Type: Spontaneous
  Country: US (occurrence: US)
  Receive Date: 20171004
  Receipt Date: 20171011
  Transmission Date: 20180321
  Serious: Yes (Other)
  Sender: FDA-Public Use
  Company Number: US-ASTELLAS-2017US039189

PATIENT
  Age: 61 Year
  Sex: Female

DRUGS (1)
  1. PROGRAF [Suspect]
     Active Substance: TACROLIMUS\TACROLIMUS ANHYDROUS
     Indication: PRODUCT USED FOR UNKNOWN INDICATION
     Route: 048
     Dates: start: 20040702, end: 20170904

REACTIONS (7)
  - Leg amputation [Unknown]
  - Mineral supplementation [Unknown]
  - Eye operation [Unknown]
  - Transfusion [Unknown]
  - Calcium deficiency [Unknown]
  - Tooth loss [Unknown]
  - Haemolysis [Recovering/Resolving]

NARRATIVE: CASE EVENT DATE: 2016
